FAERS Safety Report 8890298 (Version 2)
Quarter: 2012Q4

REPORT INFORMATION
  Report Type: 
  Country: JP (occurrence: JP)
  Receive Date: 20121107
  Receipt Date: 20121115
  Transmission Date: 20130627
  Serious: Yes (Other)
  Sender: FDA-Public Use
  Company Number: JP-PFIZER INC-2012270927

PATIENT
  Age: 84 Year
  Sex: Female

DRUGS (4)
  1. NORVASC OD [Suspect]
     Indication: HYPERTENSION
     Dosage: UNK
     Route: 048
  2. OLMETEC [Concomitant]
     Indication: HYPERTENSION
     Dosage: UNK
     Route: 048
  3. LIVALO [Concomitant]
     Indication: HYPERLIPIDAEMIA
     Dosage: UNK
     Route: 048
  4. PHENOBARBITAL [Concomitant]
     Indication: INSOMNIA
     Dosage: UNK
     Route: 048

REACTIONS (1)
  - Oesophageal ulcer [Recovered/Resolved]
